FAERS Safety Report 22030730 (Version 2)
Quarter: 2023Q1

REPORT INFORMATION
  Report Type: Report from Study
  Country: FR (occurrence: FR)
  Receive Date: 20230223
  Receipt Date: 20230310
  Transmission Date: 20230418
  Serious: Yes (Other)
  Sender: FDA-Public Use
  Company Number: FR-Vifor Pharma-VIT-2023-00355

PATIENT
  Age: 60 Year
  Sex: Male
  Weight: 75.5 kg

DRUGS (24)
  1. DIFELIKEFALIN [Suspect]
     Active Substance: DIFELIKEFALIN
     Indication: Uraemic pruritus
     Dosage: 40 MICROGRAMS 3 DOSAGE FORMS A WEEK
     Route: 042
     Dates: start: 20230110, end: 20230114
  2. DIFELIKEFALIN [Suspect]
     Active Substance: DIFELIKEFALIN
     Dosage: 10 MICROGRAM, STRONG REDUCTION OF THE NECESSARY DOSE; OTHER
     Route: 042
     Dates: start: 20230120
  3. DIFELIKEFALIN [Suspect]
     Active Substance: DIFELIKEFALIN
     Dosage: }20 MICROGRAM
     Route: 042
     Dates: start: 20230128
  4. DIFELIKEFALIN [Suspect]
     Active Substance: DIFELIKEFALIN
     Dosage: 10 MICROGRAM; FOR USE IN HAEMODIALYSIS 10 ?G TUE, THUR, SAT OR 0.2 ML AT THE END OF THE SESSION DURI
     Route: 042
     Dates: start: 20230202
  5. VENOFER [Concomitant]
     Active Substance: IRON SUCROSE
     Dosage: 1 VIAL THUR EVERY 4 WEEKS
     Route: 050
     Dates: start: 20221107
  6. ATACAND [Concomitant]
     Active Substance: CANDESARTAN CILEXETIL
     Dosage: 1 SCORED TABLET/DAY (MORNING)
     Route: 050
     Dates: start: 20230131
  7. ATENOLOL [Concomitant]
     Active Substance: ATENOLOL
     Dosage: (HALF SCORED TABLET IN THE MORNING AND HALF SCORED TABLET IN THE EVENING)
     Route: 050
     Dates: start: 20230110
  8. AZINC OPTIMAL ADULTES [Concomitant]
     Dosage: 2 CAPSULES/DAY (MORNING)
     Dates: start: 20180317
  9. ACETAMINOPHEN\CODEINE PHOSPHATE [Concomitant]
     Active Substance: ACETAMINOPHEN\CODEINE PHOSPHATE
     Dosage: (2 SCORED TABLETS IN THE MORNING / 2 SCORED TABLETS AT MIDDAY / 2 SCORED TABLETS IN THE EVENING)
     Route: 050
     Dates: start: 20201216
  10. ASPIRIN\CLOPIDOGREL [Concomitant]
     Active Substance: ASPIRIN\CLOPIDOGREL
     Dosage: 1 TABLET/DAY (MIDDAY)
     Route: 050
     Dates: start: 20200609
  11. EMLA [Concomitant]
     Active Substance: LIDOCAINE\PRILOCAINE
     Dosage: 1 TUBE TUE, THUR, SAT
     Route: 050
     Dates: start: 20190808
  12. IALUSET [Concomitant]
     Indication: Ulcer
     Dosage: CREAM 1/DAY (MORNING)
     Dates: start: 20221210
  13. IMODIUM [Concomitant]
     Active Substance: LOPERAMIDE HYDROCHLORIDE
     Dosage: 2 CAPSULES/DAY (MIDDAY)
     Route: 050
     Dates: start: 20220614
  14. LYRICA [Concomitant]
     Active Substance: PREGABALIN
     Dosage: 2 CAPSULES/DAY (1 CAPSULE IN THE MORNING / 1 CAPSULE IN THE EVENING)
     Route: 050
     Dates: start: 20201013
  15. ACETAMINOPHEN [Concomitant]
     Active Substance: ACETAMINOPHEN
     Indication: Pain
     Dosage: 2 TABLETS/DAY (1 TABLET IN THE MORNING / 1 TABLET IN THE EVENING) IF IN PAIN; DO NOT EXCEED A TOT...
     Route: 050
     Dates: start: 20220614
  16. CALCIUM CITRATE [Concomitant]
     Active Substance: CALCIUM CITRATE
     Dosage: THERAPEUTIC PREPARATION IN THE ABSENCE OF AN EQUIVALENT PROPRIETARY MEDICINAL PRODUCT
     Dates: start: 20220910
  17. OXAZEPAM [Concomitant]
     Active Substance: OXAZEPAM
     Dosage: 1 TABLET/DAY (AT BED-TIME)
     Route: 050
     Dates: start: 20200903
  18. TITANOREINE [Concomitant]
     Active Substance: CARRAGEENAN\TITANIUM\ZINC
     Dosage: 2 APPLICATIONS/DAY (1 APPLICATION IN THE MORNING / 1 APPLICATION IN THE EVENING)
     Route: 050
     Dates: start: 20201112
  19. ALFACALCIDOL [Concomitant]
     Active Substance: ALFACALCIDOL
     Dosage: 1 CAPSULE/DAY (MORNING)
     Route: 050
     Dates: start: 20200822
  20. CHOLECALCIFEROL [Concomitant]
     Active Substance: CHOLECALCIFEROL
     Dosage: 100,000 IU ORAL SOLUTION: 1 AMPOULE/DAY EVERY 15 DAYS
     Route: 050
     Dates: start: 20190504
  21. VITAMINE B12 LAVOISIER [Concomitant]
     Dosage: SOLUTION FOR INJECTION USE 1 ML MON
     Route: 050
     Dates: start: 20180317
  22. ERYTHROPOIETIN [Concomitant]
     Active Substance: ERYTHROPOIETIN
     Dosage: 3000 IU/0.3 ML: 3000 IU TUE 3000 IU THURS, 3000 IU SAT FOR 35 DAYS
     Route: 050
     Dates: start: 20230206, end: 2023
  23. POLARAMINE [Concomitant]
     Active Substance: DEXCHLORPHENIRAMINE MALEATE
     Indication: Pruritus
     Dosage: 1 AMPOULE TUE, THUR, SAT IF PRURITIS
     Route: 050
     Dates: start: 20191003
  24. FUROSEMIDE [Concomitant]
     Active Substance: FUROSEMIDE
     Dosage: 1 TABLET(S) IN THE MORNING, 1 TABLET(S) AT MIDDAY
     Dates: start: 20140911

REACTIONS (6)
  - Disorientation [Recovered/Resolved]
  - Confusional state [Recovered/Resolved]
  - Nervous system disorder [Recovered/Resolved]
  - Dysarthria [Recovered/Resolved]
  - Somnolence [Recovered/Resolved]
  - Off label use [Unknown]

NARRATIVE: CASE EVENT DATE: 20230101
